FAERS Safety Report 6371215-0 (Version None)
Quarter: 2009Q3

REPORT INFORMATION
  Report Type: 
  Country: None (occurrence: None)
  Receive Date: 20090923
  Receipt Date: 20070706
  Transmission Date: 20100115
  Serious: Yes (Other)
  Sender: FDA-Public Use
  Company Number: US-ASTRAZENECA-2006UW27750

PATIENT
  Age: 389 Month
  Sex: Female
  Weight: 60.3 kg

DRUGS (7)
  1. SEROQUEL [Suspect]
     Indication: SLEEP DISORDER
     Route: 048
     Dates: start: 20050201, end: 20050601
  2. SEROQUEL [Suspect]
     Route: 048
     Dates: start: 20050224
  3. CLOZARIL [Concomitant]
  4. CELEXA [Concomitant]
     Route: 048
     Dates: start: 20050209
  5. DILTIAZEM [Concomitant]
     Dosage: 50 TO 240 MG
     Route: 048
  6. DAPSONE [Concomitant]
     Route: 048
     Dates: start: 19990301
  7. GEMFIBROZIL [Concomitant]
     Route: 048
     Dates: start: 19990321

REACTIONS (3)
  - DIABETES MELLITUS [None]
  - DIABETIC KETOACIDOSIS [None]
  - HYPERGLYCAEMIA [None]
